FAERS Safety Report 25238812 (Version 2)
Quarter: 2025Q2

REPORT INFORMATION
  Report Type: Spontaneous
  Country: XI (occurrence: XI)
  Receive Date: 20250425
  Receipt Date: 20250530
  Transmission Date: 20250717
  Serious: Yes (Other)
  Sender: AUROBINDO
  Company Number: XI-KRKA-XI2024K21737SPO

PATIENT
  Age: 56 Year
  Sex: Female

DRUGS (3)
  1. CLOPIDOGREL [Suspect]
     Active Substance: CLOPIDOGREL BISULFATE
     Indication: Product used for unknown indication
     Route: 065
  2. CLOPIDOGREL [Suspect]
     Active Substance: CLOPIDOGREL BISULFATE
     Route: 065
  3. HYRIMOZ [Suspect]
     Active Substance: ADALIMUMAB-ADAZ
     Indication: Rheumatoid arthritis
     Route: 058
     Dates: start: 20230911

REACTIONS (8)
  - Gastrooesophageal reflux disease [Not Recovered/Not Resolved]
  - Contusion [Unknown]
  - Fatigue [Unknown]
  - Abdominal pain [Unknown]
  - Hypoglycaemia [Unknown]
  - Constipation [Unknown]
  - Depression [Recovering/Resolving]
  - Decreased appetite [Recovered/Resolved]
